FAERS Safety Report 8513416-9 (Version None)
Quarter: 2012Q3

REPORT INFORMATION
  Report Type: 
  Country: None (occurrence: None)
  Receive Date: 20120717
  Receipt Date: 20120706
  Transmission Date: 20120928
  Serious: Yes (Death, Other)
  Sender: FDA-Public Use
  Company Number: DE-BIOGENIDEC-2012BI016455

PATIENT
  Age: 53 Year
  Sex: Female

DRUGS (1)
  1. AVONEX [Suspect]
     Indication: MULTIPLE SCLEROSIS
     Route: 030
     Dates: start: 20050615

REACTIONS (5)
  - ABSCESS [None]
  - ASTHENIA [None]
  - UROGENITAL FISTULA [None]
  - UTERINE DILATION AND CURETTAGE [None]
  - INFECTION [None]
